FAERS Safety Report 6792079-7 (Version None)
Quarter: 2010Q2

REPORT INFORMATION
  Report Type: 
  Country: None (occurrence: None)
  Receive Date: 20100624
  Receipt Date: 20080926
  Transmission Date: 20101027
  Serious: No
  Sender: FDA-Public Use
  Company Number: US-PFIZER INC-2008061721

PATIENT
  Sex: Female
  Weight: 18.6 kg

DRUGS (3)
  1. GENOTROPIN [Suspect]
     Indication: GROWTH HORMONE DEFICIENCY
     Route: 058
     Dates: start: 20080101
  2. GENOTROPIN [Suspect]
     Dates: start: 20080722
  3. GENOTROPIN [Suspect]

REACTIONS (1)
  - INJECTION SITE PAIN [None]
